FAERS Safety Report 7075473-9 (Version None)
Quarter: 2010Q4

REPORT INFORMATION
  Report Type: 
  Country: None (occurrence: None)
  Receive Date: 20101030
  Receipt Date: 20100907
  Transmission Date: 20110411
  Serious: No
  Sender: FDA-Public Use
  Company Number: US-WYE-H17406110

PATIENT
  Age: 65 Year
  Sex: Female
  Weight: 43.58 kg

DRUGS (2)
  1. ADVIL PM [Suspect]
     Indication: INSOMNIA
     Dosage: 2 CAPLETS ONCE
     Route: 048
     Dates: start: 20100906, end: 20100906
  2. ACTONEL [Concomitant]

REACTIONS (2)
  - DRY MOUTH [None]
  - INFLUENZA LIKE ILLNESS [None]
